FAERS Safety Report 16608041 (Version 1)
Quarter: 2019Q3

REPORT INFORMATION
  Report Type: Spontaneous
  Country: US (occurrence: US)
  Receive Date: 20190722
  Receipt Date: 20190722
  Transmission Date: 20191004
  Serious: No
  Sender: FDA-Public Use
  Company Number: US-STRIDES ARCOLAB LIMITED-2018SP009670

PATIENT
  Age: 68 Year
  Sex: Male

DRUGS (1)
  1. DONEPEZIL. [Suspect]
     Active Substance: DONEPEZIL
     Indication: PARKINSON^S DISEASE
     Dosage: 5 MG/DAY
     Route: 065

REACTIONS (2)
  - Off label use [Unknown]
  - Muscle contractions involuntary [Recovered/Resolved]
